FAERS Safety Report 8220521-3 (Version None)
Quarter: 2012Q1

REPORT INFORMATION
  Report Type: 
  Country: None (occurrence: None)
  Receive Date: 20120320
  Receipt Date: 20120305
  Transmission Date: 20120608
  Serious: Yes (Hospitalization)
  Sender: FDA-Public Use
  Company Number: SI-CELGENEUS-261-50794-12020101

PATIENT
  Sex: Male
  Weight: 58 kg

DRUGS (6)
  1. DIAPREL [Concomitant]
     Indication: DIABETES MELLITUS
     Route: 065
  2. VIDAZA [Suspect]
     Route: 065
     Dates: start: 20111214, end: 20111227
  3. ACIPAN [Concomitant]
     Indication: GASTRITIS
     Route: 065
  4. TANYZ [Concomitant]
     Route: 065
  5. PAROXETINE HCL [Concomitant]
     Indication: DEPRESSION
     Route: 065
  6. GLUCOPHAGE [Concomitant]
     Indication: DIABETES MELLITUS
     Route: 065

REACTIONS (4)
  - TORTICOLLIS [None]
  - PNEUMONIA [None]
  - NEUTROPENIA [None]
  - SEPSIS [None]
